FAERS Safety Report 8031268-0 (Version None)
Quarter: 2012Q1

REPORT INFORMATION
  Report Type: 
  Country: None (occurrence: None)
  Receive Date: 20120109
  Receipt Date: 20120103
  Transmission Date: 20120608
  Serious: Yes (Life-Threatening, Hospitalization, Congenital Anomaly)
  Sender: FDA-Public Use
  Company Number: US-GLAXOSMITHKLINE-A0685054A

PATIENT
  Sex: Male

DRUGS (6)
  1. PAXIL CR [Suspect]
     Indication: ANXIETY
     Dosage: 20MG TWICE PER DAY
     Route: 064
     Dates: start: 20051201, end: 20060101
  2. TRAZODONE HCL [Concomitant]
     Route: 064
     Dates: start: 20051101, end: 20060201
  3. ADALAT [Concomitant]
     Route: 064
  4. FEOSOL [Concomitant]
     Route: 064
     Dates: start: 20060101
  5. PAXIL [Suspect]
     Indication: ANXIETY
     Dosage: 20MG TWICE PER DAY
     Route: 064
     Dates: start: 20051101, end: 20060101
  6. MULTI-VITAMINS [Concomitant]
     Route: 064
     Dates: start: 20060101

REACTIONS (18)
  - BICUSPID AORTIC VALVE [None]
  - CONGENITAL PULMONARY HYPERTENSION [None]
  - PULMONARY OEDEMA [None]
  - PULMONARY ARTERY STENOSIS CONGENITAL [None]
  - CARDIAC MURMUR [None]
  - FOETAL EXPOSURE DURING PREGNANCY [None]
  - PREMATURE BABY [None]
  - VENTRICULAR SEPTAL DEFECT [None]
  - RIGHT VENTRICULAR HYPERTROPHY [None]
  - ATRIAL SEPTAL DEFECT [None]
  - APNOEA [None]
  - TRICUSPID VALVE INCOMPETENCE [None]
  - LEFT ATRIAL DILATATION [None]
  - BREECH PRESENTATION [None]
  - PATENT DUCTUS ARTERIOSUS [None]
  - PNEUMONIA ASPIRATION [None]
  - CARDIAC FAILURE CONGESTIVE [None]
  - GASTROOESOPHAGEAL REFLUX DISEASE [None]
